FAERS Safety Report 10603348 (Version 1)
Quarter: 2014Q4

REPORT INFORMATION
  Report Type: Report from Study
  Country: US (occurrence: US)
  Receive Date: 20141124
  Receipt Date: 20141124
  Transmission Date: 20150529
  Serious: Yes (Other)
  Sender: FDA-Public Use
  Company Number: US-EXELIXIS-XL18414004968

PATIENT
  Sex: Female

DRUGS (1)
  1. XL184 [Suspect]
     Active Substance: CABOZANTINIB
     Indication: CENTRAL NERVOUS SYSTEM NEOPLASM
     Dosage: UNK

REACTIONS (1)
  - Osteonecrosis [Unknown]
